FAERS Safety Report 4383596-8 (Version None)
Quarter: 2004Q2

REPORT INFORMATION
  Report Type: 
  Country: None (occurrence: None)
  Receive Date: 20040618
  Receipt Date: 20040607
  Transmission Date: 20050107
  Serious: Yes (Other)
  Sender: FDA-Public Use
  Company Number: ZANA001316

PATIENT
  Age: 55 Year
  Sex: Male

DRUGS (7)
  1. ZANAFLEX [Suspect]
     Indication: MUSCLE RELAXANT THERAPY
     Dosage: 100 MG ORAL
     Route: 048
     Dates: start: 20040510
  2. ZONEGRAN [Suspect]
     Indication: FIBROMYALGIA
     Dosage: 200 MG ORAL
     Route: 048
     Dates: start: 20040517, end: 20040603
  3. CLONIDINE [Concomitant]
  4. PROVIGIL [Concomitant]
  5. MELATONIN (MELATONIN) [Concomitant]
  6. AVINZA [Concomitant]
  7. ANDROGEL [Concomitant]

REACTIONS (13)
  - AGITATION [None]
  - ASTHENIA [None]
  - CONFUSIONAL STATE [None]
  - DISTURBANCE IN ATTENTION [None]
  - DRY MOUTH [None]
  - DYSGEUSIA [None]
  - HYPERAESTHESIA [None]
  - IRRITABILITY [None]
  - MEMORY IMPAIRMENT [None]
  - PRURITUS [None]
  - SOMNOLENCE [None]
  - SPEECH DISORDER [None]
  - VISION BLURRED [None]
